FAERS Safety Report 9870778 (Version 2)
Quarter: 2014Q1

REPORT INFORMATION
  Report Type: Report from Study
  Country: VE (occurrence: VE)
  Receive Date: 20140205
  Receipt Date: 20140205
  Transmission Date: 20141002
  Serious: Yes (Hospitalization, Other)
  Sender: FDA-Public Use
  Company Number: VE-ABBVIE-13P-178-1046610-00

PATIENT
  Age: 65 Year
  Sex: Female
  Weight: 75 kg

DRUGS (6)
  1. HUMIRA [Suspect]
     Indication: OSTEOARTHRITIS
     Route: 058
     Dates: start: 20110214, end: 201204
  2. HYZAAR [Concomitant]
     Indication: HYPERTENSION
     Dosage: DAILY
  3. GLUCOFAGE [Concomitant]
     Indication: HYPERINSULINISM
  4. MELOVAT [Concomitant]
     Indication: OSTEOARTHRITIS
     Dosage: ONE IN THE MORNING
     Route: 048
     Dates: start: 2012
  5. ARTRODAR [Concomitant]
     Indication: OSTEOARTHRITIS
     Dosage: ONE IN THE NIGHT
     Route: 048
     Dates: start: 2012
  6. METHOTREXATE [Concomitant]
     Indication: OSTEOARTHRITIS
     Route: 048

REACTIONS (4)
  - Pulmonary embolism [Recovered/Resolved]
  - Pneumonia [Recovered/Resolved]
  - Hypertension [Recovering/Resolving]
  - Tachycardia [Recovered/Resolved]
